FAERS Safety Report 7262670-2 (Version None)
Quarter: 2011Q1

REPORT INFORMATION
  Report Type: 
  Country: None (occurrence: None)
  Receive Date: 20110130
  Receipt Date: 20100922
  Transmission Date: 20110831
  Serious: Yes (Other)
  Sender: FDA-Public Use
  Company Number: US-ABBOTT-10P-163-0673572-00

PATIENT
  Sex: Female
  Weight: 94.432 kg

DRUGS (2)
  1. HUMIRA [Suspect]
     Indication: PSORIATIC ARTHROPATHY
  2. HUMIRA [Suspect]
     Indication: RHEUMATOID ARTHRITIS
     Route: 058
     Dates: start: 20050101

REACTIONS (6)
  - PAIN IN EXTREMITY [None]
  - FEELING ABNORMAL [None]
  - ARTHRALGIA [None]
  - PAIN [None]
  - DRUG DOSE OMISSION [None]
  - ASTHENIA [None]
